FAERS Safety Report 24045497 (Version 2)
Quarter: 2024Q4

REPORT INFORMATION
  Report Type: Report from Study
  Country: ES (occurrence: ES)
  Receive Date: 20240703
  Receipt Date: 20241018
  Transmission Date: 20250114
  Serious: No
  Sender: ROCHE
  Company Number: ES-ROCHE-10000001826

PATIENT
  Age: 45 Year
  Sex: Male

DRUGS (18)
  1. OCRELIZUMAB [Suspect]
     Active Substance: OCRELIZUMAB
     Indication: Relapsing-remitting multiple sclerosis
     Route: 058
     Dates: start: 20200128
  2. OCRELIZUMAB [Suspect]
     Active Substance: OCRELIZUMAB
     Route: 042
     Dates: start: 20220915, end: 20220915
  3. OCRELIZUMAB [Suspect]
     Active Substance: OCRELIZUMAB
     Route: 042
     Dates: start: 20210903, end: 20210903
  4. OCRELIZUMAB [Suspect]
     Active Substance: OCRELIZUMAB
     Route: 042
     Dates: start: 20220303, end: 20220303
  5. OCRELIZUMAB [Suspect]
     Active Substance: OCRELIZUMAB
     Route: 042
     Dates: start: 20230413, end: 20230413
  6. OCRELIZUMAB [Suspect]
     Active Substance: OCRELIZUMAB
     Route: 042
     Dates: start: 20200723, end: 20200723
  7. OCRELIZUMAB [Suspect]
     Active Substance: OCRELIZUMAB
     Route: 042
     Dates: start: 20231123, end: 20231123
  8. OCRELIZUMAB [Suspect]
     Active Substance: OCRELIZUMAB
     Route: 042
     Dates: start: 20210125, end: 20210125
  9. OCRELIZUMAB [Suspect]
     Active Substance: OCRELIZUMAB
     Route: 042
     Dates: start: 20200211, end: 20200211
  10. OCRELIZUMAB [Suspect]
     Active Substance: OCRELIZUMAB
     Route: 042
     Dates: start: 20240605, end: 20240605
  11. METHIMAZOLE [Concomitant]
     Active Substance: METHIMAZOLE
     Route: 048
  12. PREDNISONE [Concomitant]
     Active Substance: PREDNISONE
     Route: 048
     Dates: start: 20211022
  13. CALCIFEDIOL [Concomitant]
     Active Substance: CALCIFEDIOL
     Route: 048
     Dates: start: 20210414
  14. DIAZEPAM [Concomitant]
     Active Substance: DIAZEPAM
     Route: 048
     Dates: start: 20210114
  15. RIFAXIMIN [Concomitant]
     Active Substance: RIFAXIMIN
     Route: 048
     Dates: start: 20230119
  16. OMEPRAZOLE [Concomitant]
     Active Substance: OMEPRAZOLE
     Route: 048
     Dates: start: 20201215
  17. RIFAXIMIN [Concomitant]
     Active Substance: RIFAXIMIN
     Route: 048
     Dates: start: 20230119
  18. MELATONIN [Concomitant]
     Active Substance: MELATONIN
     Route: 048
     Dates: start: 20240408, end: 20240414

REACTIONS (1)
  - COVID-19 [Recovered/Resolved]

NARRATIVE: CASE EVENT DATE: 20240323
